FAERS Safety Report 19149070 (Version 1)
Quarter: 2021Q2

REPORT INFORMATION
  Report Type: Report from Study
  Country: TW (occurrence: TW)
  Receive Date: 20210416
  Receipt Date: 20210416
  Transmission Date: 20210717
  Serious: Yes (Death, Other)
  Sender: FDA-Public Use
  Company Number: TW-TAKEDA-2021TUS024189

PATIENT
  Age: 40 Year
  Sex: Male

DRUGS (4)
  1. IDURSULFASE [Suspect]
     Active Substance: IDURSULFASE
     Dosage: 0.48 MILLIGRAM/KILOGRAM, 1/WEEK
     Route: 042
     Dates: start: 20170614, end: 20171101
  2. IDURSULFASE [Suspect]
     Active Substance: IDURSULFASE
     Dosage: 0.48 MILLIGRAM/KILOGRAM, 1/WEEK
     Route: 042
     Dates: start: 20160307
  3. IDURSULFASE [Suspect]
     Active Substance: IDURSULFASE
     Dosage: 0.48 MILLIGRAM/KILOGRAM, 1/WEEK
     Route: 042
     Dates: start: 20150309
  4. IDURSULFASE [Suspect]
     Active Substance: IDURSULFASE
     Indication: MUCOPOLYSACCHARIDOSIS II
     Dosage: 0.48 MILLIGRAM/KILOGRAM, 1/WEEK
     Route: 042
     Dates: start: 20140714

REACTIONS (1)
  - Death [Fatal]

NARRATIVE: CASE EVENT DATE: 20190201
